FAERS Safety Report 6341313-6 (Version None)
Quarter: 2009Q3

REPORT INFORMATION
  Report Type: 
  Country: None (occurrence: None)
  Receive Date: 20090904
  Receipt Date: 20090827
  Transmission Date: 20100115
  Serious: Yes (Hospitalization, Other)
  Sender: FDA-Public Use
  Company Number: US-ELI_LILLY_AND_COMPANY-US200908006141

PATIENT
  Sex: Female
  Weight: 88.435 kg

DRUGS (9)
  1. BYETTA [Suspect]
     Indication: TYPE 2 DIABETES MELLITUS
     Dosage: 5 UG, 2/D
     Dates: start: 20060101, end: 20060101
  2. BYETTA [Suspect]
     Dosage: 10 UG, 2/D
     Dates: start: 20060101
  3. GLUCOPHAGE XR [Concomitant]
     Dosage: 2000 MG, DAILY (1/D)
     Route: 048
     Dates: end: 20090801
  4. GLUCOPHAGE XR [Concomitant]
     Dosage: 2500 MG, DAILY (1/D)
     Route: 048
     Dates: start: 20090801
  5. JANUVIA [Concomitant]
     Indication: TYPE 2 DIABETES MELLITUS
     Dosage: 50 MG, DAILY (1/D)
     Route: 048
     Dates: start: 20081001
  6. COZAAR [Concomitant]
     Indication: RENAL DISORDER
     Dosage: 50 MG, DAILY (1/D)
     Route: 048
     Dates: end: 20090801
  7. COZAAR [Concomitant]
     Dosage: 25 MG, DAILY (1/D)
     Route: 048
     Dates: start: 20090801
  8. ZOLOFT [Concomitant]
     Dosage: 100 MG, DAILY (1/D)
     Route: 048
  9. SIMVASTATIN [Concomitant]
     Dosage: 80 MG, DAILY (1/D)
     Route: 048

REACTIONS (6)
  - EXTRASYSTOLES [None]
  - HOT FLUSH [None]
  - HYPOTENSION [None]
  - MUSCULOSKELETAL PAIN [None]
  - MYOCARDIAL INFARCTION [None]
  - PAIN IN EXTREMITY [None]
